FAERS Safety Report 11191407 (Version 2)
Quarter: 2015Q3

REPORT INFORMATION
  Report Type: Report from Study
  Country: CA (occurrence: CA)
  Receive Date: 20150616
  Receipt Date: 20150723
  Transmission Date: 20151125
  Serious: Yes (Other)
  Sender: FDA-Public Use
  Company Number: PHHY2015CA060629

PATIENT
  Sex: Female

DRUGS (7)
  1. AFINITOR [Suspect]
     Active Substance: EVEROLIMUS
     Indication: BREAST CANCER
     Dosage: 10 MG, QD
     Route: 048
     Dates: start: 20150507
  2. LYRICA [Concomitant]
     Active Substance: PREGABALIN
     Indication: PRODUCT USED FOR UNKNOWN INDICATION
     Dosage: UNK
     Route: 065
  3. CALCIUM [Concomitant]
     Active Substance: CALCIUM
     Indication: PRODUCT USED FOR UNKNOWN INDICATION
     Route: 065
  4. ULTRA [Concomitant]
     Indication: PRODUCT USED FOR UNKNOWN INDICATION
     Route: 065
  5. VITAMIN D [Concomitant]
     Active Substance: CHOLECALCIFEROL
     Indication: PRODUCT USED FOR UNKNOWN INDICATION
     Route: 065
  6. AROMASIN [Concomitant]
     Active Substance: EXEMESTANE
     Indication: PRODUCT USED FOR UNKNOWN INDICATION
     Dosage: UNK
     Route: 065
  7. PANTOLOC [Concomitant]
     Active Substance: PANTOPRAZOLE SODIUM
     Indication: PRODUCT USED FOR UNKNOWN INDICATION
     Dosage: UNK
     Route: 065

REACTIONS (10)
  - Salivary hypersecretion [Unknown]
  - Nausea [Recovered/Resolved]
  - Epistaxis [Recovered/Resolved]
  - Enlarged uvula [Unknown]
  - Insomnia [Not Recovered/Not Resolved]
  - Tongue eruption [Recovered/Resolved]
  - Pulmonary oedema [Recovering/Resolving]
  - Pharyngeal erythema [Unknown]
  - Dyspnoea [Unknown]
  - Fatigue [Unknown]
